FAERS Safety Report 7321825-9 (Version None)
Quarter: 2011Q1

REPORT INFORMATION
  Report Type: 
  Country: None (occurrence: None)
  Receive Date: 20110228
  Receipt Date: 20110215
  Transmission Date: 20110831
  Serious: Yes (Other)
  Sender: FDA-Public Use
  Company Number: PHHY2011DE14013

PATIENT
  Age: 8 Year
  Sex: Male

DRUGS (4)
  1. PREDNISOLONE [Suspect]
     Dosage: 2 MG/KG PER DAY
     Route: 058
  2. IBUPROFEN [Concomitant]
  3. PREDNISOLONE [Suspect]
     Dosage: 1.7 MG/KG PER DAY
  4. ANAKINRA [Suspect]
     Dosage: 2 MG/KG PER DAY

REACTIONS (16)
  - HISTIOCYTOSIS HAEMATOPHAGIC [None]
  - FIBRIN D DIMER INCREASED [None]
  - ALANINE AMINOTRANSFERASE INCREASED [None]
  - INCREASED APPETITE [None]
  - PYREXIA [None]
  - LYMPHADENOPATHY [None]
  - PANCYTOPENIA [None]
  - AGRANULOCYTOSIS [None]
  - SERUM FERRITIN INCREASED [None]
  - WEIGHT INCREASED [None]
  - HEPATOSPLENOMEGALY [None]
  - BLOOD LACTATE DEHYDROGENASE INCREASED [None]
  - ASPARTATE AMINOTRANSFERASE INCREASED [None]
  - GAMMA-GLUTAMYLTRANSFERASE INCREASED [None]
  - C-REACTIVE PROTEIN DECREASED [None]
  - LYMPHOHISTIOCYTOSIS [None]
